FAERS Safety Report 7941651-7 (Version None)
Quarter: 2011Q4

REPORT INFORMATION
  Report Type: 
  Country: None (occurrence: None)
  Receive Date: 20111128
  Receipt Date: 20111128
  Transmission Date: 20120403
  Serious: Yes (Hospitalization)
  Sender: FDA-Public Use
  Company Number: None

PATIENT
  Age: 77 Year
  Sex: Male
  Weight: 87 kg

DRUGS (1)
  1. PRADAXA [Suspect]
     Indication: ATRIAL FIBRILLATION
     Dosage: 150MG
     Route: 048
     Dates: start: 20100101, end: 20111119

REACTIONS (3)
  - CONSTIPATION [None]
  - UPPER GASTROINTESTINAL HAEMORRHAGE [None]
  - ACUTE RESPIRATORY FAILURE [None]
